FAERS Safety Report 9946702 (Version 1)
Quarter: 2014Q1

REPORT INFORMATION
  Report Type: Report from Study
  Country: US (occurrence: US)
  Receive Date: 20140303
  Receipt Date: 20140303
  Transmission Date: 20141002
  Serious: No
  Sender: FDA-Public Use
  Company Number: US-ABBVIE-13P-163-1060127-00

PATIENT
  Age: 49 Year
  Sex: Male

DRUGS (5)
  1. HUMIRA [Suspect]
     Indication: PRODUCT USED FOR UNKNOWN INDICATION
     Route: 058
     Dates: start: 200712
  2. HUMIRA [Suspect]
     Route: 058
     Dates: start: 201301
  3. HUMIRA [Suspect]
     Route: 058
     Dates: start: 201303
  4. VITAMIN D [Concomitant]
     Indication: PRODUCT USED FOR UNKNOWN INDICATION
  5. CELEBREX [Concomitant]
     Indication: PSORIATIC ARTHROPATHY

REACTIONS (2)
  - Psoriasis [Unknown]
  - Pharyngitis streptococcal [Unknown]
